FAERS Safety Report 16354394 (Version 2)
Quarter: 2020Q2

REPORT INFORMATION
  Report Type: Spontaneous
  Country: JP (occurrence: JP)
  Receive Date: 20190524
  Receipt Date: 20200410
  Transmission Date: 20200713
  Serious: Yes (Life-Threatening, Hospitalization, Other)
  Sender: FDA-Public Use
  Company Number: JP-ASTRAZENECA-2019SE77249

PATIENT
  Age: 4 Month
  Sex: Male

DRUGS (2)
  1. SILDENAFIL CITRATE. [Concomitant]
     Active Substance: SILDENAFIL CITRATE
     Indication: PRODUCT USED FOR UNKNOWN INDICATION
     Route: 065
  2. SYNAGIS [Suspect]
     Active Substance: PALIVIZUMAB
     Indication: ANTIVIRAL PROPHYLAXIS
     Route: 030
     Dates: start: 201805, end: 20180622

REACTIONS (12)
  - Pulmonary alveolar haemorrhage [Unknown]
  - Respiratory failure [Recovered/Resolved]
  - Wheezing [Unknown]
  - Dyspnoea [Unknown]
  - Pathogen resistance [Unknown]
  - Urinary tract infection [Unknown]
  - PO2 decreased [Unknown]
  - Sinus node dysfunction [Unknown]
  - Cough [Unknown]
  - Respiratory syncytial virus infection [Unknown]
  - Asthma [Unknown]
  - Nodal rhythm [Unknown]

NARRATIVE: CASE EVENT DATE: 20180626
